FAERS Safety Report 8321295-8 (Version None)
Quarter: 2012Q2

REPORT INFORMATION
  Report Type: 
  Country: None (occurrence: None)
  Receive Date: 20120430
  Receipt Date: 20120423
  Transmission Date: 20120825
  Serious: Yes (Hospitalization)
  Sender: FDA-Public Use
  Company Number: US-BAYER-2012-040760

PATIENT
  Age: 23 Year
  Sex: Female
  Weight: 92.971 kg

DRUGS (29)
  1. YAZ [Suspect]
  2. ATIVAN [Concomitant]
     Dosage: 0.5 MG, BID
     Route: 042
  3. DILAUDID [Concomitant]
     Dosage: 1 MG, UNK
     Route: 042
  4. MOTRIN [Concomitant]
     Indication: PAIN
     Dosage: 800 MG, TID
  5. TYLENOL (CAPLET) [Concomitant]
     Dosage: 650 MG, UNK
  6. D-AMPHETAMINE SALT COM XR [Concomitant]
     Dosage: 30 MG, OM
  7. SEASONALE [Concomitant]
  8. PERCOCET [Concomitant]
     Dosage: 5-325 MG
  9. ESTRADIOL [Concomitant]
  10. ADDERALL 5 [Concomitant]
  11. ZANAFLEX [Concomitant]
     Indication: MIGRAINE
     Dosage: 4 MG, TID
  12. FLU [Concomitant]
  13. MECLIZINE [Concomitant]
     Dosage: 12.5 MG, BID 1-2 TABLETS AS NEEDED
  14. SUMATRIPTAN [Concomitant]
     Indication: MIGRAINE
     Dosage: 100 MG, PRN
  15. BENADRYL [Concomitant]
     Dosage: 25 MG, UNK
     Route: 042
  16. TORADOL [Concomitant]
     Dosage: 30 MG, UNK
     Route: 042
  17. ZOFRAN [Concomitant]
     Dosage: 4 MG, UNK
     Route: 042
  18. AMOXICILLIN [Concomitant]
     Dosage: 8 MG, BID
  19. VICODIN [Concomitant]
     Indication: PAIN
     Dosage: UNK UNK, Q4HR
  20. PROZAC [Concomitant]
     Dosage: 40 MG, QD
  21. IBUPROFEN [Concomitant]
     Dosage: 400 MG, TID
  22. ZONEGRAN [Concomitant]
     Dosage: 25 MG, QD
  23. REGLAN [Concomitant]
     Dosage: 10 MG, UNK
     Route: 042
  24. FLEXERIL [Concomitant]
     Dosage: 10 MG, TID AS NEEDED
  25. RELPAX [Concomitant]
     Indication: MIGRAINE
     Dosage: 40 MG, UNK
  26. DILAUDID [Concomitant]
     Dosage: 0.5 MG, UNK
  27. DROSPIRENONE AND ETHINYL ESTRADIOL [Suspect]
  28. NAPROSYN [Concomitant]
  29. BUTALBITAL ACETAMINOPHEN AND CAFFEINE [Concomitant]
     Indication: MIGRAINE
     Dosage: UNK UNK, TID 1-2 TABLETS AS NEEDED

REACTIONS (2)
  - DEEP VEIN THROMBOSIS [None]
  - PULMONARY EMBOLISM [None]
